FAERS Safety Report 7001133-6 (Version None)
Quarter: 2010Q3

REPORT INFORMATION
  Report Type: 
  Country: None (occurrence: None)
  Receive Date: 20100920
  Receipt Date: 20100909
  Transmission Date: 20110219
  Serious: Yes (Other)
  Sender: FDA-Public Use
  Company Number: PHHY2010AU59792

PATIENT
  Sex: Male

DRUGS (2)
  1. RITALIN LA [Suspect]
     Dosage: 20 MG, UNK
  2. CATAPRES /UNK/ [Concomitant]

REACTIONS (1)
  - CONSTIPATION [None]
